FAERS Safety Report 9123803 (Version 1)
Quarter: 2013Q1

REPORT INFORMATION
  Report Type: Spontaneous
  Country: FR (occurrence: FR)
  Receive Date: 20130115
  Receipt Date: 20130115
  Transmission Date: 20140127
  Serious: Yes (Hospitalization)
  Sender: FDA-Public Use
  Company Number: FR-TEVA-379295ISR

PATIENT
  Age: 64 Year
  Sex: Male

DRUGS (12)
  1. PROPRANOLOL [Suspect]
     Indication: VARICES OESOPHAGEAL
     Dosage: 160 MILLIGRAM DAILY;
     Route: 048
     Dates: start: 20121030, end: 20121114
  2. PROPRANOLOL [Suspect]
     Dosage: 80 MILLIGRAM DAILY;
     Route: 048
     Dates: start: 20121114, end: 20121116
  3. FENOFIBRATE [Concomitant]
     Dosage: 160 MILLIGRAM DAILY;
     Route: 048
  4. METFORMINE BIOGARAN [Concomitant]
     Dosage: 2550 MILLIGRAM DAILY;
     Route: 048
  5. SOLIAN [Concomitant]
     Dosage: 1 DOSAGE FORMS DAILY;
     Route: 048
  6. TERCIAN [Concomitant]
     Dosage: 10 GTT DAILY; IN THE EVENING
     Route: 048
  7. THERALENE [Concomitant]
     Dosage: 20 GTT DAILY; IN THE EVENING
     Route: 048
  8. CICLETANINE BIOGARAN [Concomitant]
     Dosage: 1 DOSAGE FORMS DAILY;
  9. ALLOPURINOL BIOGARAN [Concomitant]
     Dosage: 100 MILLIGRAM DAILY;
     Route: 048
  10. REPAGLINIDE BIOGARAN [Concomitant]
     Dosage: 3 MILLIGRAM DAILY;
     Route: 048
  11. LOVENOX [Concomitant]
     Dosage: 1 ML DAILY;
     Route: 058
  12. ESBERIVEN [Concomitant]

REACTIONS (5)
  - Bradycardia [Recovered/Resolved]
  - Atrioventricular block [Recovered/Resolved]
  - Renal failure [Recovered/Resolved]
  - Metabolic acidosis [Recovered/Resolved]
  - Dialysis [None]
